FAERS Safety Report 15267653 (Version 1)
Quarter: 2018Q3

REPORT INFORMATION
  Report Type: Spontaneous
  Country: US (occurrence: US)
  Receive Date: 20180724
  Receipt Date: 20180724
  Transmission Date: 20181010
  Serious: No
  Sender: FDA-Public Use
  Company Number: None

PATIENT
  Age: 58 Year
  Sex: Male

DRUGS (1)
  1. SIMPONI [Suspect]
     Active Substance: GOLIMUMAB
     Dates: start: 20171005, end: 20180705

REACTIONS (3)
  - Drug effect decreased [None]
  - Lung disorder [None]
  - Imaging procedure abnormal [None]

NARRATIVE: CASE EVENT DATE: 20180705
